FAERS Safety Report 7363426-2 (Version None)
Quarter: 2011Q1

REPORT INFORMATION
  Report Type: 
  Country: None (occurrence: None)
  Receive Date: 20110321
  Receipt Date: 20110308
  Transmission Date: 20110831
  Serious: Yes (Hospitalization)
  Sender: FDA-Public Use
  Company Number: US-JNJFOC-20090904243

PATIENT
  Sex: Female
  Weight: 28 kg

DRUGS (6)
  1. 5-AMINOSALICYLIC ACID [Concomitant]
     Route: 048
  2. METHOTREXATE [Concomitant]
  3. VANCOMYCIN [Concomitant]
     Indication: EVIDENCE BASED TREATMENT
  4. METRONIDAZOLE [Concomitant]
  5. REMICADE [Suspect]
     Route: 042
  6. REMICADE [Suspect]
     Indication: COLITIS
     Route: 042

REACTIONS (1)
  - COLITIS [None]
